FAERS Safety Report 12494207 (Version 1)
Quarter: 2016Q2

REPORT INFORMATION
  Report Type: Report from Study
  Country: US (occurrence: US)
  Receive Date: 20160623
  Receipt Date: 20160623
  Transmission Date: 20160815
  Serious: Yes (Death, Hospitalization)
  Sender: FDA-Public Use
  Company Number: US-EXELIXIS-CABO-16006321

PATIENT
  Sex: Female

DRUGS (1)
  1. COMETRIQ [Suspect]
     Active Substance: CABOZANTINIB S-MALATE
     Indication: METASTASES TO LUNG
     Dosage: 80 MG, QD
     Route: 048
     Dates: start: 20160406, end: 201606

REACTIONS (3)
  - Off label use [Unknown]
  - Cardiac tamponade [Fatal]
  - Rash [Recovered/Resolved]
